FAERS Safety Report 4634855-2 (Version None)
Quarter: 2005Q2

REPORT INFORMATION
  Report Type: 
  Country: None (occurrence: None)
  Receive Date: 20050414
  Receipt Date: 20050404
  Transmission Date: 20051028
  Serious: Yes (Other)
  Sender: FDA-Public Use
  Company Number: PHFR2005GB01398

PATIENT
  Age: 26 Year
  Sex: Female

DRUGS (2)
  1. VOLTAROL [Suspect]
     Dosage: 1 UNK, TID
     Route: 048
     Dates: start: 20050216, end: 20050219
  2. CO-CODAMOL [Concomitant]
     Indication: ARTHRALGIA
     Dosage: 2 PRN
     Route: 048

REACTIONS (2)
  - LEUKOCYTOCLASTIC VASCULITIS [None]
  - RASH [None]
